FAERS Safety Report 5619410-X (Version None)
Quarter: 2008Q1

REPORT INFORMATION
  Report Type: 
  Country: None (occurrence: None)
  Receive Date: 20080114
  Receipt Date: 20070213
  Transmission Date: 20080703
  Serious: Yes (Other)
  Sender: FDA-Public Use
  Company Number: A03200701356

PATIENT
  Age: 80 Year
  Sex: Female

DRUGS (4)
  1. PLAVIX [Suspect]
     Indication: MYOCARDIAL INFARCTION
     Dosage: 75 MG QD - ORAL
     Route: 048
     Dates: start: 20060101, end: 20070101
  2. LISINOPRIL [Concomitant]
  3. SIMVASTATIN [Concomitant]
  4. SERTRALINE HYDROCHLORIDE [Concomitant]

REACTIONS (6)
  - ABASIA [None]
  - FALL [None]
  - INSOMNIA [None]
  - NERVE INJURY [None]
  - PAIN [None]
  - SYNCOPE [None]
